FAERS Safety Report 10881925 (Version 1)
Quarter: 2015Q1

REPORT INFORMATION
  Report Type: Spontaneous
  Country: US (occurrence: None)
  Receive Date: 20150227
  Receipt Date: 20150227
  Transmission Date: 20150721
  Serious: No
  Sender: FDA-Public Use
  Company Number: None

PATIENT
  Age: 55 Year
  Sex: Female

DRUGS (5)
  1. LISINOPRIL. [Concomitant]
     Active Substance: LISINOPRIL
  2. VICTOZA [Concomitant]
     Active Substance: LIRAGLUTIDE
  3. ATIVAN [Concomitant]
     Active Substance: LORAZEPAM
  4. HARVONI [Suspect]
     Active Substance: LEDIPASVIR\SOFOSBUVIR
     Indication: HEPATITIS C
     Dosage: 90MG/400MG 1QD PO
     Route: 048
     Dates: start: 20150201
  5. PERCOCET [Concomitant]
     Active Substance: ACETAMINOPHEN\OXYCODONE HYDROCHLORIDE

REACTIONS (9)
  - Nausea [None]
  - Diarrhoea [None]
  - Insomnia [None]
  - Lymphadenopathy [None]
  - Headache [None]
  - Diplopia [None]
  - Fatigue [None]
  - Vision blurred [None]
  - Vomiting [None]

NARRATIVE: CASE EVENT DATE: 20150225
